FAERS Safety Report 17986180 (Version 2)
Quarter: 2020Q3

REPORT INFORMATION
  Report Type: Other
  Country: FR (occurrence: FR)
  Receive Date: 20200707
  Receipt Date: 20200707
  Transmission Date: 20201103
  Serious: Yes (Hospitalization)
  Sender: FDA-Public Use
  Company Number: FR-CADILA HEALTHCARE LIMITED-FR-ZYDUS-052788

PATIENT

DRUGS (16)
  1. CEFTAZIDIME. [Suspect]
     Active Substance: CEFTAZIDIME
     Indication: INFECTION
     Dosage: 6 GRAM
     Route: 041
     Dates: start: 20190426, end: 20190513
  2. ROVAMYCINE [SPIRAMYCIN ADEPATE] [Suspect]
     Active Substance: SPIRAMYCIN ADIPATE
     Indication: INFECTION
     Dosage: 3 DOSAGE FORM
     Route: 041
     Dates: start: 20190430, end: 20190506
  3. CYTARABINE. [Suspect]
     Active Substance: CYTARABINE
     Indication: ACUTE MYELOID LEUKAEMIA
     Dosage: 2520 MILLIGRAM
     Route: 041
     Dates: start: 20190425, end: 20190501
  4. HYDREA [Suspect]
     Active Substance: HYDROXYUREA
     Indication: ACUTE MYELOID LEUKAEMIA
     Dosage: 2 GRAM
     Route: 048
     Dates: start: 20190419, end: 20190425
  5. DAUNORUBICINE [Suspect]
     Active Substance: DAUNORUBICIN
     Indication: ACUTE MYELOID LEUKAEMIA
     Dosage: 480 MILLIGRAM
     Route: 041
     Dates: start: 20190425, end: 20190427
  6. VANCOMYCINE [VANCOMYCIN] [Suspect]
     Active Substance: VANCOMYCIN
     Indication: INFECTION
     Dosage: 2500 MILLIGRAM
     Route: 041
     Dates: start: 20190425, end: 20190510
  7. ALLOPURINOL. [Suspect]
     Active Substance: ALLOPURINOL
     Indication: PROPHYLAXIS
     Dosage: 300 MILLIGRAM
     Route: 048
     Dates: start: 20190419, end: 20190502
  8. METHYLPREDNISOLONE. [Suspect]
     Active Substance: METHYLPREDNISOLONE
     Indication: ACUTE MYELOID LEUKAEMIA
     Dosage: 40 MILLIGRAM
     Route: 037
     Dates: start: 20190425, end: 20190503
  9. AMIKACINE [AMIKACIN] [Suspect]
     Active Substance: AMIKACIN
     Indication: INFECTION
     Dosage: 1 GRAM
     Route: 041
     Dates: start: 20190425, end: 20190427
  10. ALPRAZOLAM. [Suspect]
     Active Substance: ALPRAZOLAM
     Indication: ANXIETY
     Dosage: 0.25 MILLIGRAM
     Route: 048
     Dates: start: 20190423, end: 20190510
  11. CYTARABINE. [Suspect]
     Active Substance: CYTARABINE
     Indication: ACUTE MYELOID LEUKAEMIA
     Route: 037
     Dates: start: 20190425, end: 20190503
  12. AMBISOME [Suspect]
     Active Substance: AMPHOTERICIN B
     Indication: INFECTION
     Dosage: 200 MILLIGRAM
     Route: 041
     Dates: start: 20190429, end: 20190520
  13. RYDAPT [Suspect]
     Active Substance: MIDOSTAURIN
     Indication: ACUTE MYELOID LEUKAEMIA
     Dosage: 100 MILLIGRAM
     Route: 048
     Dates: start: 20190502, end: 20190505
  14. METHOTREXATE. [Suspect]
     Active Substance: METHOTREXATE
     Indication: ACUTE MYELOID LEUKAEMIA
     Dosage: 15 MILLIGRAM
     Route: 037
     Dates: start: 20190425, end: 20190503
  15. ACICLOVIR [Suspect]
     Active Substance: ACYCLOVIR
     Indication: INFECTION
     Dosage: 750 MILLIGRAM
     Route: 041
     Dates: start: 20190429, end: 20190519
  16. CEFOTAXIME [Suspect]
     Active Substance: CEFOTAXIME SODIUM
     Indication: INFECTION
     Dosage: 6 GRAM
     Route: 041
     Dates: start: 20190422, end: 20190425

REACTIONS (1)
  - Posterior reversible encephalopathy syndrome [Recovered/Resolved with Sequelae]

NARRATIVE: CASE EVENT DATE: 20190506
